FAERS Safety Report 5911682-7 (Version None)
Quarter: 2008Q4

REPORT INFORMATION
  Report Type: 
  Country: None (occurrence: None)
  Receive Date: 20081007
  Receipt Date: 20080926
  Transmission Date: 20090506
  Serious: Yes (Hospitalization, Other)
  Sender: FDA-Public Use
  Company Number: US-ELI_LILLY_AND_COMPANY-US200809006163

PATIENT
  Sex: Male
  Weight: 108.84 kg

DRUGS (9)
  1. BYETTA [Suspect]
     Indication: TYPE 2 DIABETES MELLITUS
     Dosage: 5 UG, 2/D
     Route: 058
     Dates: start: 20050601, end: 20061001
  2. BYETTA [Suspect]
     Dosage: 5 UG, 2/D
     Route: 058
     Dates: start: 20061001
  3. ALPRAZOLAM [Concomitant]
     Indication: ANXIETY DISORDER
     Dosage: 0.5 MG, 4/D
  4. AMITRIPTYLINE HCL [Concomitant]
     Indication: ANXIETY
     Dosage: 50 MG, EACH MORNING
  5. AMITRIPTYLINE HCL [Concomitant]
     Dosage: 100 MG, EACH EVENING
  6. BUPROPION HCL [Concomitant]
     Indication: ANXIETY
     Dosage: 10 MG, 2/D
  7. METFORMIN HCL [Concomitant]
     Indication: TYPE 2 DIABETES MELLITUS
     Dosage: 1000 MG, 2/D
  8. METOPROLOL TARTRATE [Concomitant]
     Indication: BLOOD PRESSURE
     Dosage: 100 MG, EACH MORNING
  9. AMBIEN [Concomitant]
     Indication: INSOMNIA
     Dosage: 12.5 MG, EACH EVENING

REACTIONS (11)
  - BACK DISORDER [None]
  - BLOOD GLUCOSE INCREASED [None]
  - HYPOAESTHESIA [None]
  - INTERVERTEBRAL DISC DEGENERATION [None]
  - LIMB DISCOMFORT [None]
  - NEUROPATHY PERIPHERAL [None]
  - PAIN [None]
  - PARAESTHESIA [None]
  - SCIATICA [None]
  - SPINAL FUSION SURGERY [None]
  - VOCAL CORD DISORDER [None]
